FAERS Safety Report 5329476-2 (Version None)
Quarter: 2007Q2

REPORT INFORMATION
  Report Type: 
  Country: None (occurrence: None)
  Receive Date: 20070221
  Receipt Date: 20060629
  Transmission Date: 20071010
  Serious: Yes (Other)
  Sender: FDA-Public Use
  Company Number: BDI-008332

PATIENT
  Age: 71 Year
  Sex: Female

DRUGS (1)
  1. IOPAMIDOL [Suspect]
     Indication: COMPUTERISED TOMOGRAM THORAX ABNORMAL
     Dosage: 100 ML ONCE IV
     Route: 042
     Dates: start: 20060614, end: 20060614

REACTIONS (4)
  - PRURITUS [None]
  - THROAT IRRITATION [None]
  - THROAT TIGHTNESS [None]
  - URTICARIA [None]
